FAERS Safety Report 10257541 (Version 4)
Quarter: 2014Q3

REPORT INFORMATION
  Report Type: Spontaneous
  Country: US (occurrence: US)
  Receive Date: 20140625
  Receipt Date: 20140715
  Transmission Date: 20150326
  Serious: Yes (Other)
  Sender: FDA-Public Use
  Company Number: PHEH2014US011257

PATIENT
  Sex: Female

DRUGS (12)
  1. LEXAPRO [Concomitant]
     Active Substance: ESCITALOPRAM OXALATE
  2. VELCADE [Concomitant]
     Active Substance: BORTEZOMIB
  3. OXYCONTIN [Concomitant]
     Active Substance: OXYCODONE HYDROCHLORIDE
  4. ZOMETA [Suspect]
     Active Substance: ZOLEDRONIC ACID
     Indication: OSTEOPOROSIS
     Dosage: 4 MG, QMO
     Route: 042
     Dates: start: 2004
  5. DECADRON [Concomitant]
     Active Substance: DEXAMETHASONE
  6. FLAGYL [Concomitant]
     Active Substance: METRONIDAZOLE\METRONIDAZOLE HYDROCHLORIDE
  7. REGLAN//METOCLOPRAMIDE [Concomitant]
  8. FENTANYL. [Concomitant]
     Active Substance: FENTANYL
  9. AREDIA [Suspect]
     Active Substance: PAMIDRONATE DISODIUM
     Indication: PLASMA CELL MYELOMA
     Dosage: 90 MG, QMO
     Route: 042
     Dates: start: 200407, end: 20081230
  10. THALIDOMIDE [Concomitant]
     Active Substance: THALIDOMIDE
  11. AREDIA [Suspect]
     Active Substance: PAMIDRONATE DISODIUM
     Dosage: 90 MG, UNK
     Route: 042
     Dates: start: 20090310
  12. REVLIMID [Concomitant]
     Active Substance: LENALIDOMIDE

REACTIONS (126)
  - Osteolysis [Unknown]
  - Cancer pain [Unknown]
  - Rotator cuff syndrome [Unknown]
  - Neuropathy peripheral [Unknown]
  - Hyperlipidaemia [Unknown]
  - Erythema [Unknown]
  - Pulmonary hypertension [Unknown]
  - Sepsis [Unknown]
  - Plasma cell myeloma [Unknown]
  - Acetabulum fracture [Unknown]
  - Pulmonary fibrosis [Unknown]
  - Pulmonary mass [Unknown]
  - Pain in extremity [Unknown]
  - Dysphagia [Unknown]
  - Hypovolaemia [Unknown]
  - Spinal compression fracture [Unknown]
  - Osteopenia [Unknown]
  - Urinary tract infection [Unknown]
  - Confusional state [Unknown]
  - Arteriosclerosis [Unknown]
  - Oral mucosal erythema [Unknown]
  - Pancytopenia [Unknown]
  - Conjunctivitis [Unknown]
  - Sinus tachycardia [Unknown]
  - Urinary incontinence [Unknown]
  - Skin lesion [Unknown]
  - Myoclonus [Unknown]
  - Paraesthesia [Unknown]
  - Hypoaesthesia [Unknown]
  - Arthralgia [Unknown]
  - Pruritus [Unknown]
  - Insomnia [Unknown]
  - Dyspnoea exertional [Unknown]
  - Bronchitis [Unknown]
  - Migraine [Unknown]
  - Skin discolouration [Unknown]
  - Mental status changes [Unknown]
  - Sinusitis [Unknown]
  - Pigmentation disorder [Unknown]
  - Palpitations [Unknown]
  - Cough [Unknown]
  - Scar [Unknown]
  - Papule [Unknown]
  - Osteomyelitis [Unknown]
  - Mucosal inflammation [Unknown]
  - Colitis [Unknown]
  - Gastroenteritis [Unknown]
  - Osteoporosis [Unknown]
  - Rib fracture [Unknown]
  - Dyspnoea [Unknown]
  - Cellulitis [Unknown]
  - Pneumothorax [Unknown]
  - Radiculopathy [Unknown]
  - Renal failure [Unknown]
  - Second primary malignancy [Unknown]
  - Osteoarthropathy [Unknown]
  - Spinal pain [Unknown]
  - Vomiting [Unknown]
  - Fatigue [Unknown]
  - Night sweats [Unknown]
  - Urticaria [Unknown]
  - Hot flush [Unknown]
  - Dizziness [Unknown]
  - Osteonecrosis of jaw [Unknown]
  - Haematochezia [Unknown]
  - Streptococcal bacteraemia [Unknown]
  - Tracheobronchitis [Unknown]
  - Hypercholesterolaemia [Unknown]
  - Depression [Unknown]
  - Candida infection [Unknown]
  - Gastrooesophageal reflux disease [Unknown]
  - Oral candidiasis [Unknown]
  - Facet joint syndrome [Unknown]
  - Upper respiratory tract infection [Unknown]
  - Osteoarthritis [Unknown]
  - Atelectasis [Unknown]
  - Spinal osteoarthritis [Unknown]
  - Deformity thorax [Unknown]
  - Back pain [Unknown]
  - Contusion [Unknown]
  - Peripheral swelling [Unknown]
  - Gait disturbance [Unknown]
  - Exposed bone in jaw [Unknown]
  - Intervertebral disc protrusion [Unknown]
  - Anxiety [Unknown]
  - Pleural effusion [Unknown]
  - Gastritis [Unknown]
  - Haematoma [Unknown]
  - Metastases to bone [Unknown]
  - Sarcoma [Unknown]
  - Malignant neoplasm progression [Unknown]
  - Pathological fracture [Unknown]
  - Fall [Unknown]
  - Staphylococcal infection [Unknown]
  - Pain [Unknown]
  - Alopecia [Unknown]
  - Musculoskeletal chest pain [Unknown]
  - Nasal congestion [Unknown]
  - Pain in jaw [Unknown]
  - Tremor [Unknown]
  - Herpes zoster [Unknown]
  - Influenza [Unknown]
  - Phlebolith [Unknown]
  - Laceration [Unknown]
  - Thrombocytopenia [Unknown]
  - Vertebral foraminal stenosis [Unknown]
  - Intervertebral disc degeneration [Unknown]
  - Febrile neutropenia [Unknown]
  - Haemorrhoids [Unknown]
  - Encephalitis [Unknown]
  - Meningitis bacterial [Unknown]
  - Hiatus hernia [Unknown]
  - Excoriation [Unknown]
  - Tooth abscess [Unknown]
  - Gingival bleeding [Unknown]
  - Toothache [Unknown]
  - Diarrhoea [Unknown]
  - Abdominal pain [Unknown]
  - Decreased appetite [Unknown]
  - Nausea [Unknown]
  - Rhonchi [Unknown]
  - Anaemia [Unknown]
  - Rales [Unknown]
  - Oral pain [Unknown]
  - Dry skin [Unknown]
  - Apnoea [Unknown]

NARRATIVE: CASE EVENT DATE: 2008
